FAERS Safety Report 21523390 (Version 1)
Quarter: 2022Q4

REPORT INFORMATION
  Report Type: Spontaneous
  Country: GB (occurrence: GB)
  Receive Date: 20221029
  Receipt Date: 20221029
  Transmission Date: 20230113
  Serious: Yes (Death, Hospitalization, Other)
  Sender: FDA-Public Use
  Company Number: GB-AUROBINDO-AUR-APL-2022-044999

PATIENT
  Age: 83 Year
  Sex: Female

DRUGS (1)
  1. ACETAMINOPHEN [Suspect]
     Active Substance: ACETAMINOPHEN
     Indication: Product used for unknown indication
     Dosage: 1 GRAM, FOUR TIMES/DAY
     Route: 048

REACTIONS (5)
  - Multiple organ dysfunction syndrome [Fatal]
  - Hepatotoxicity [Fatal]
  - Sepsis [Fatal]
  - Overdose [Fatal]
  - Incorrect dose administered [Unknown]
